FAERS Safety Report 10568792 (Version 2)
Quarter: 2014Q4

REPORT INFORMATION
  Report Type: Spontaneous
  Country: DE (occurrence: DE)
  Receive Date: 20141106
  Receipt Date: 20141112
  Transmission Date: 20150529
  Serious: Yes (Hospitalization)
  Sender: FDA-Public Use
  Company Number: DE-BRISTOL-MYERS SQUIBB COMPANY-21539655

PATIENT
  Age: 64 Year
  Sex: Female
  Weight: 52 kg

DRUGS (6)
  1. FORXIGA [Suspect]
     Active Substance: DAPAGLIFLOZIN
     Indication: DIABETES MELLITUS
     Route: 048
     Dates: start: 20141009
  2. JANUMET [Concomitant]
     Active Substance: METFORMIN HYDROCHLORIDE\SITAGLIPTIN PHOSPHATE
     Indication: DIABETES MELLITUS
  3. BISOPROLOL [Concomitant]
     Active Substance: BISOPROLOL
     Indication: HYPERTENSION
  4. CANDESARTAN [Concomitant]
     Active Substance: CANDESARTAN
     Indication: HYPERTENSION
  5. PREDNISOLONE. [Concomitant]
     Active Substance: PREDNISOLONE
     Indication: RHEUMATIC DISORDER
  6. ASPIRIN. [Concomitant]
     Active Substance: ASPIRIN
     Indication: HYPERTENSION

REACTIONS (2)
  - Hyponatraemia [Recovered/Resolved]
  - Amnesia [Recovered/Resolved]

NARRATIVE: CASE EVENT DATE: 20141013
